FAERS Safety Report 25852768 (Version 1)
Quarter: 2025Q3

REPORT INFORMATION
  Report Type: Spontaneous
  Country: US (occurrence: US)
  Receive Date: 20250926
  Receipt Date: 20250926
  Transmission Date: 20251020
  Serious: No
  Sender: GALPHARM INTERNATIONAL
  Company Number: US-PERRIGO-24US011169

PATIENT
  Sex: Female

DRUGS (1)
  1. LEVONORGESTREL [Suspect]
     Active Substance: LEVONORGESTREL
     Indication: Product used for unknown indication
     Route: 048
     Dates: start: 202409, end: 202409

REACTIONS (3)
  - Menstruation irregular [Unknown]
  - Heavy menstrual bleeding [Unknown]
  - Polymenorrhoea [Unknown]

NARRATIVE: CASE EVENT DATE: 20240901
